FAERS Safety Report 23959878 (Version 9)
Quarter: 2025Q1

REPORT INFORMATION
  Report Type: Report from Study
  Country: GB (occurrence: GB)
  Receive Date: 20240611
  Receipt Date: 20250331
  Transmission Date: 20250409
  Serious: Yes (Hospitalization)
  Sender: ABBVIE
  Company Number: GB-ABBVIE-5790238

PATIENT
  Age: 66 Year
  Sex: Male

DRUGS (6)
  1. CARBIDOPA\LEVODOPA [Suspect]
     Active Substance: CARBIDOPA\LEVODOPA
     Indication: Parkinson^s disease
     Route: 050
  2. CARBIDOPA\LEVODOPA [Suspect]
     Active Substance: CARBIDOPA\LEVODOPA
     Route: 050
  3. CARBIDOPA\LEVODOPA [Suspect]
     Active Substance: CARBIDOPA\LEVODOPA
     Route: 050
  4. CARBIDOPA\LEVODOPA [Suspect]
     Active Substance: CARBIDOPA\LEVODOPA
     Route: 050
  5. CARBIDOPA\LEVODOPA [Suspect]
     Active Substance: CARBIDOPA\LEVODOPA
     Route: 050
  6. CARBIDOPA\LEVODOPA [Suspect]
     Active Substance: CARBIDOPA\LEVODOPA
     Route: 050

REACTIONS (15)
  - Device related infection [Unknown]
  - Shoulder fracture [Unknown]
  - Dementia [Not Recovered/Not Resolved]
  - Psychotic disorder [Unknown]
  - Dyskinesia [Not Recovered/Not Resolved]
  - Mental disorder [Unknown]
  - Catheter site infection [Unknown]
  - Rib fracture [Unknown]
  - Stoma site infection [Recovered/Resolved]
  - Aspiration [Unknown]
  - Hallucination, visual [Unknown]
  - Fall [Unknown]
  - Delusion [Unknown]
  - Abnormal behaviour [Unknown]
  - Grimacing [Unknown]

NARRATIVE: CASE EVENT DATE: 20231201
